FAERS Safety Report 7864931-2 (Version None)
Quarter: 2011Q4

REPORT INFORMATION
  Report Type: 
  Country: None (occurrence: None)
  Receive Date: 20111028
  Receipt Date: 20100921
  Transmission Date: 20120403
  Serious: No
  Sender: FDA-Public Use
  Company Number: US-GLAXOSMITHKLINE-A0882342A

PATIENT
  Age: 81 Year
  Sex: Female

DRUGS (2)
  1. XANAX [Concomitant]
  2. ADVAIR DISKUS 100/50 [Suspect]
     Indication: COUGH
     Dosage: 1PUFF TWICE PER DAY
     Route: 055
     Dates: start: 20100917, end: 20100921

REACTIONS (5)
  - FEELING JITTERY [None]
  - PAIN IN EXTREMITY [None]
  - NERVOUSNESS [None]
  - BACK PAIN [None]
  - MYALGIA [None]
